FAERS Safety Report 11789119 (Version 1)
Quarter: 2015Q4

REPORT INFORMATION
  Report Type: Spontaneous
  Country: GB (occurrence: GB)
  Receive Date: 20151201
  Receipt Date: 20151201
  Transmission Date: 20160305
  Serious: Yes (Hospitalization, Other)
  Sender: FDA-Public Use
  Company Number: GB-AUROBINDO-AUR-APL-2015-10513

PATIENT
  Age: 90 Year
  Sex: Female
  Weight: 58.5 kg

DRUGS (3)
  1. CODEINE [Concomitant]
     Active Substance: CODEINE
     Indication: PRODUCT USED FOR UNKNOWN INDICATION
     Route: 065
  2. TRIMETHOPRIM. [Concomitant]
     Active Substance: TRIMETHOPRIM
     Indication: PRODUCT USED FOR UNKNOWN INDICATION
     Route: 065
  3. NAPROXEN 500MG [Suspect]
     Active Substance: NAPROXEN
     Indication: ANALGESIC THERAPY
     Dosage: 500 MG, TWO TIMES A DAY
     Route: 048
     Dates: start: 20151008, end: 20151101

REACTIONS (4)
  - Drug prescribing error [Unknown]
  - Gastric ulcer haemorrhage [Recovered/Resolved]
  - Fall [Unknown]
  - Chest pain [Unknown]

NARRATIVE: CASE EVENT DATE: 20151031
